FAERS Safety Report 16986134 (Version 1)
Quarter: 2019Q4

REPORT INFORMATION
  Report Type: Spontaneous
  Country: US (occurrence: US)
  Receive Date: 20191103
  Receipt Date: 20191103
  Transmission Date: 20200122
  Serious: No
  Sender: FDA-Public Use
  Company Number: US-009507513-1910USA013026

PATIENT
  Age: 18 Year
  Sex: Female
  Weight: 84.81 kg

DRUGS (1)
  1. NEXPLANON [Suspect]
     Active Substance: ETONOGESTREL
     Indication: CONTRACEPTION
     Dosage: ONE IMPLANT FOR 3 YEARS
     Route: 059
     Dates: start: 20190816, end: 20190916

REACTIONS (5)
  - Implant site fibrosis [Recovering/Resolving]
  - Implant site erythema [Recovering/Resolving]
  - Implant site scar [Recovering/Resolving]
  - Application site discomfort [Unknown]
  - Implant site pain [Recovering/Resolving]

NARRATIVE: CASE EVENT DATE: 2019
